FAERS Safety Report 9725622 (Version 1)
Quarter: 2013Q4

REPORT INFORMATION
  Report Type: Spontaneous
  Country: US (occurrence: None)
  Receive Date: 20131127
  Receipt Date: 20131127
  Transmission Date: 20140711
  Serious: Yes (Other)
  Sender: FDA-Public Use
  Company Number: AUR-APL-2013-09852

PATIENT
  Age: 68 Year
  Sex: Female

DRUGS (2)
  1. PAROXETINE [Suspect]
     Indication: ANXIETY
     Dosage: 10 MG (10 MG, 1 IN 1 D), ORAL
     Route: 048
  2. LORAZEPAM (LORAZEPAM) [Concomitant]

REACTIONS (5)
  - Tremor [None]
  - Bone marrow failure [None]
  - Hyponatraemia [None]
  - Hypophagia [None]
  - Somatisation disorder [None]
